FAERS Safety Report 9836961 (Version 1)
Quarter: 2014Q1

REPORT INFORMATION
  Report Type: Spontaneous
  Country: US (occurrence: US)
  Receive Date: 20140123
  Receipt Date: 20140123
  Transmission Date: 20141002
  Serious: No
  Sender: FDA-Public Use
  Company Number: US-PFIZER INC-2014017553

PATIENT
  Age: 79 Year
  Sex: Male

DRUGS (11)
  1. SUTENT [Suspect]
     Indication: RENAL CANCER
     Dosage: UNK
     Dates: start: 20140107
  2. ALLOPURINOL [Concomitant]
     Dosage: UNK
  3. PROTONIX [Concomitant]
     Dosage: UNK
  4. AVODART [Concomitant]
     Dosage: UNK
  5. SIMVASTATIN [Concomitant]
     Dosage: UNK
  6. CELEBREX [Concomitant]
     Dosage: UNK
  7. TOPROL XL [Concomitant]
     Dosage: UNK
  8. FLOMAX [Concomitant]
     Dosage: UNK
  9. VASOTEC [Concomitant]
     Dosage: UNK
  10. MULTAQ [Concomitant]
     Dosage: UNK
  11. PROCARDIA XL [Concomitant]
     Dosage: UNK

REACTIONS (1)
  - Nausea [Unknown]
